FAERS Safety Report 9222587 (Version 2)
Quarter: 2013Q2

REPORT INFORMATION
  Report Type: Report from Study
  Country: US (occurrence: US)
  Receive Date: 20130410
  Receipt Date: 20130507
  Transmission Date: 20140414
  Serious: Yes (Life-Threatening, Hospitalization)
  Sender: FDA-Public Use
  Company Number: US-MERCK-1304USA003255

PATIENT
  Age: 77 Year
  Sex: Male
  Weight: 84.2 kg

DRUGS (18)
  1. VORINOSTAT [Suspect]
     Indication: DIFFUSE LARGE B-CELL LYMPHOMA
     Dosage: 400 MG, QD ON DAYS 1-5
     Route: 048
     Dates: start: 20121231
  2. VORINOSTAT [Suspect]
     Dosage: 400 MG, QD ON DAYS 1-5
     Route: 048
     Dates: start: 20130214
  3. VORINOSTAT [Suspect]
     Dosage: 400 MG, QD ON DAYS 1-5
     Route: 048
     Dates: start: 20130416
  4. CYCLOPHOSPHAMIDE [Suspect]
     Indication: DIFFUSE LARGE B-CELL LYMPHOMA
     Dosage: 750 MG/M2, OVER 30-60 MINUTES ON DAY 3
     Route: 042
     Dates: start: 20130216
  5. CYCLOPHOSPHAMIDE [Suspect]
     Dosage: 750 MG/M2, OVER 30-60 MINUTES ON DAY 3
     Route: 042
     Dates: start: 20120102
  6. CYCLOPHOSPHAMIDE [Suspect]
     Dosage: 750 MG/M2, OVER 30-60 MINUTES ON DAY 3
     Route: 042
     Dates: start: 20130418
  7. DOXORUBICIN [Suspect]
     Indication: DIFFUSE LARGE B-CELL LYMPHOMA
     Dosage: 50 MG/M2, ON DAY 3
     Route: 042
     Dates: start: 20130216
  8. DOXORUBICIN [Suspect]
     Dosage: 50 MG/M2, ON DAY 3
     Route: 042
     Dates: start: 20120102
  9. DOXORUBICIN [Suspect]
     Dosage: 50 MG/M2, ON DAY 3
     Route: 042
     Dates: start: 20130416
  10. PREDNISONE [Suspect]
     Indication: DIFFUSE LARGE B-CELL LYMPHOMA
     Dosage: 100 MG PO QD ON DAYS 3-7
     Route: 048
     Dates: start: 20130102
  11. PREDNISONE [Suspect]
     Dosage: 100 MG PO QD ON DAYS 3-7
     Route: 048
     Dates: start: 20130216
  12. PREDNISONE [Suspect]
     Dosage: 100 MG PO QD ON DAYS 3-7
     Route: 048
     Dates: start: 20130418
  13. RITUXIMAB [Suspect]
     Indication: DIFFUSE LARGE B-CELL LYMPHOMA
     Dosage: 375 MG/M2, IV INFUSION ON DAY 3
     Route: 042
     Dates: start: 20130216
  14. RITUXIMAB [Suspect]
     Dosage: 375 MG/M2, IV INFUSION ON DAY 3
     Route: 042
     Dates: start: 20120102
  15. RITUXIMAB [Suspect]
     Dosage: 375 MG/M2, IV INFUSION ON DAY 3
     Route: 042
     Dates: start: 20130418
  16. VINCRISTINE [Suspect]
     Indication: DIFFUSE LARGE B-CELL LYMPHOMA
     Dosage: 1.4 MG/M2, IVP ON DAY 3
     Route: 042
     Dates: start: 20130216
  17. VINCRISTINE [Suspect]
     Dosage: 1.4 MG/M2, IVP ON DAY 3
     Route: 042
     Dates: start: 20120102
  18. VINCRISTINE [Suspect]
     Dosage: 1.4 MG/M2, IVP ON DAY 3
     Route: 042
     Dates: start: 20130418

REACTIONS (6)
  - Neutrophil count decreased [Recovered/Resolved]
  - White blood cell count decreased [Recovered/Resolved]
  - Neutrophil count decreased [Not Recovered/Not Resolved]
  - Platelet count decreased [Not Recovered/Not Resolved]
  - White blood cell count decreased [Not Recovered/Not Resolved]
  - Febrile neutropenia [Not Recovered/Not Resolved]
